FAERS Safety Report 7318583-0 (Version None)
Quarter: 2011Q1

REPORT INFORMATION
  Report Type: 
  Country: None (occurrence: None)
  Receive Date: 20110218
  Receipt Date: 20110218
  Transmission Date: 20110831
  Serious: No
  Sender: FDA-Public Use
  Company Number: None

PATIENT
  Age: 97 Year
  Sex: Female
  Weight: 50.4 kg

DRUGS (1)
  1. LEVAQUIN [Suspect]
     Dosage: 500 MG ONCE IV DRIP
     Route: 041
     Dates: start: 20110216, end: 20110216

REACTIONS (2)
  - INFUSION SITE ERYTHEMA [None]
  - INFUSION SITE PRURITUS [None]
